FAERS Safety Report 11444847 (Version 1)
Quarter: 2015Q3

REPORT INFORMATION
  Report Type: Spontaneous
  Country: IT (occurrence: None)
  Receive Date: 20150831
  Receipt Date: 20150831
  Transmission Date: 20151125
  Serious: Yes (Hospitalization)
  Sender: FDA-Public Use
  Company Number: KAD201508-002773

PATIENT
  Age: 63 Year
  Sex: Female

DRUGS (2)
  1. RIBAVIRIN. [Suspect]
     Active Substance: RIBAVIRIN
     Indication: CHRONIC HEPATITIS C
  2. SOFOSBUVIR (SOFOSBUVIR) [Suspect]
     Active Substance: SOFOSBUVIR
     Indication: CHRONIC HEPATITIS C

REACTIONS (2)
  - Embolism arterial [None]
  - Catheter site related reaction [None]
